FAERS Safety Report 25306190 (Version 1)
Quarter: 2025Q2

REPORT INFORMATION
  Report Type: Other
  Country: GB (occurrence: GB)
  Receive Date: 20250513
  Receipt Date: 20250513
  Transmission Date: 20250716
  Serious: Yes (Other)
  Sender: MACLEODS
  Company Number: GB-MHRA-TPP2491010C9657877YC1746112447674

PATIENT

DRUGS (17)
  1. ROSUVASTATIN [Suspect]
     Active Substance: ROSUVASTATIN
     Indication: Ill-defined disorder
     Dosage: CRUSH AND DISPERSE IN WATER T...
     Route: 048
  2. OXYCODONE HYDROCHLORIDE [Concomitant]
     Active Substance: OXYCODONE HYDROCHLORIDE
     Indication: Ill-defined disorder
     Dosage: TAKE 2.5 TO 5MLS UP TO FOUR TIMES A DAY
     Route: 048
     Dates: start: 20250401, end: 20250429
  3. BEMPEDOIC ACID [Concomitant]
     Active Substance: BEMPEDOIC ACID
     Indication: Ill-defined disorder
     Route: 048
  4. AMLODIPINE [Concomitant]
     Active Substance: AMLODIPINE BESYLATE
     Indication: Ill-defined disorder
     Route: 048
  5. FENOFIBRATE [Concomitant]
     Active Substance: FENOFIBRATE
     Indication: Ill-defined disorder
     Dosage: THE CAPSULES CAN BE OPENED AND ...
     Route: 048
  6. RAMIPRIL [Concomitant]
     Active Substance: RAMIPRIL
     Indication: Ill-defined disorder
     Dosage: THE CAPSULES CAN BE OPENED, AND...
     Route: 048
  7. AMITRIPTYLINE HYDROCHLORIDE [Concomitant]
     Active Substance: AMITRIPTYLINE HYDROCHLORIDE
     Indication: Ill-defined disorder
     Dosage: EACH NIGHT
     Route: 048
  8. FORTISIP COMPACT PROTEIN [Concomitant]
     Indication: Ill-defined disorder
     Route: 065
  9. SODIUM FLUORIDE [Concomitant]
     Active Substance: SODIUM FLUORIDE
     Indication: Ill-defined disorder
     Route: 065
     Dates: start: 20250123
  10. MEPILEX XT [Concomitant]
     Indication: Ill-defined disorder
     Route: 065
     Dates: start: 20250328
  11. BENZYDAMINE HYDROCHLORIDE [Concomitant]
     Active Substance: BENZYDAMINE HYDROCHLORIDE
     Indication: Ill-defined disorder
     Route: 065
     Dates: start: 20250401
  12. DOCUSATE SODIUM [Concomitant]
     Active Substance: DOCUSATE SODIUM
     Indication: Ill-defined disorder
     Route: 048
  13. MACROGOL COMPOUND [Concomitant]
     Indication: Constipation
     Route: 065
     Dates: start: 20250401
  14. OMEPRAZOLE [Concomitant]
     Active Substance: OMEPRAZOLE
     Indication: Ill-defined disorder
     Route: 048
  15. ACETAMINOPHEN [Concomitant]
     Active Substance: ACETAMINOPHEN
     Indication: Ill-defined disorder
     Dosage: 10MLS UP TO FOUR TIMES A DAY
     Route: 065
     Dates: start: 20250401
  16. SENNA [Concomitant]
     Active Substance: SENNOSIDES
     Indication: Ill-defined disorder
     Dosage: AT NIGHT
     Route: 065
  17. PREGABALIN [Concomitant]
     Active Substance: PREGABALIN
     Indication: Product used for unknown indication
     Dosage: TAKE TWO TWICE A DAY FOR 1 WEEK, THEN ONE TWICE A DAY?FOR 1 WEEK, THEN STOP
     Route: 048
     Dates: start: 20250425

REACTIONS (2)
  - Peripheral swelling [Recovered/Resolved]
  - Erythema [Unknown]

NARRATIVE: CASE EVENT DATE: 20250501
